FAERS Safety Report 6882820-7 (Version None)
Quarter: 2010Q3

REPORT INFORMATION
  Report Type: 
  Country: None (occurrence: None)
  Receive Date: 20100702
  Receipt Date: 20090817
  Transmission Date: 20110219
  Serious: Yes (Other)
  Sender: FDA-Public Use
  Company Number: 2009258460

PATIENT
  Sex: Female

DRUGS (2)
  1. ZOLOFT [Suspect]
  2. YASMIN [Suspect]

REACTIONS (1)
  - ANGIOEDEMA [None]
